FAERS Safety Report 16341528 (Version 1)
Quarter: 2019Q2

REPORT INFORMATION
  Report Type: Spontaneous
  Country: ES (occurrence: ES)
  Receive Date: 20190522
  Receipt Date: 20190522
  Transmission Date: 20190711
  Serious: Yes (Hospitalization, Other)
  Sender: FDA-Public Use
  Company Number: ES-AUROBINDO-AUR-APL-2019-026539

PATIENT

DRUGS (6)
  1. QUETIAPINE. [Suspect]
     Active Substance: QUETIAPINE
     Indication: PRODUCT USED FOR UNKNOWN INDICATION
     Dosage: UNK, 1 DAILY
     Route: 065
     Dates: end: 20180601
  2. DUODOPA [Suspect]
     Active Substance: CARBIDOPA\LEVODOPA
     Indication: PARKINSON^S DISEASE
     Dosage: UNK, (DECREASE OF 0.2 ML OF DUODOPA CONTINUOUS DOSE PER WEEK)
     Route: 065
     Dates: start: 2018
  3. QUETIAPINE. [Suspect]
     Active Substance: QUETIAPINE
     Dosage: UNK, 2 DAILY
     Route: 065
     Dates: start: 20180602
  4. DUODOPA [Suspect]
     Active Substance: CARBIDOPA\LEVODOPA
     Dosage: UNK, INCREASE DUODOPA CONTINUOUS DOSE FROM 3.9 TO 4.1 ML/H
     Route: 065
     Dates: start: 2018
  5. DUODOPA [Suspect]
     Active Substance: CARBIDOPA\LEVODOPA
     Dosage: UNK, DUODOPA CONTINUOUS DOSE: 3.9 ML
     Route: 065
     Dates: start: 2018
  6. DUODOPA [Suspect]
     Active Substance: CARBIDOPA\LEVODOPA
     Dosage: 3.9 MILLILITER, EVERY HOUR
     Route: 065
     Dates: start: 20180308, end: 2018

REACTIONS (7)
  - Muscle rigidity [Recovered/Resolved]
  - Daydreaming [Recovered/Resolved]
  - Urinary tract infection [Recovered/Resolved]
  - Unresponsive to stimuli [Recovered/Resolved]
  - Freezing phenomenon [Recovered/Resolved]
  - Hallucination [Recovered/Resolved]
  - Aggression [Recovered/Resolved]

NARRATIVE: CASE EVENT DATE: 201804
